FAERS Safety Report 16225630 (Version 1)
Quarter: 2019Q2

REPORT INFORMATION
  Report Type: Spontaneous
  Country: US (occurrence: US)
  Receive Date: 20190422
  Receipt Date: 20190422
  Transmission Date: 20190711
  Serious: No
  Sender: FDA-Public Use
  Company Number: US-ELI_LILLY_AND_COMPANY-US201904005067

PATIENT
  Sex: Female

DRUGS (1)
  1. TALTZ [Suspect]
     Active Substance: IXEKIZUMAB
     Indication: PRODUCT USED FOR UNKNOWN INDICATION
     Dosage: 160 MG, SINGLE
     Route: 058
     Dates: start: 20190327, end: 20190327

REACTIONS (5)
  - Fear [Unknown]
  - Injection site pain [Unknown]
  - Arthralgia [Unknown]
  - Crying [Unknown]
  - Injection site mass [Unknown]

NARRATIVE: CASE EVENT DATE: 20190327
